FAERS Safety Report 4340276-2 (Version None)
Quarter: 2004Q2

REPORT INFORMATION
  Report Type: 
  Country: None (occurrence: None)
  Receive Date: 20040412
  Receipt Date: 20040401
  Transmission Date: 20050107
  Serious: Yes (Hospitalization)
  Sender: FDA-Public Use
  Company Number: IT-JNJFOC-20040400687

PATIENT
  Age: 59 Year
  Sex: Female

DRUGS (6)
  1. REMICADE [Suspect]
     Indication: POLYARTHRITIS
     Dosage: 200 MG, 1 IN 1 MONTH, INTRAVENOUS
     Route: 042
     Dates: start: 20030130, end: 20030130
  2. REMICADE [Suspect]
     Indication: RHEUMATOID ARTHRITIS
     Dosage: 200 MG, 1 IN 1 MONTH, INTRAVENOUS
     Route: 042
     Dates: start: 20030130, end: 20030130
  3. AZATHIOPRINE [Concomitant]
  4. METHOTREXATE [Concomitant]
  5. URBASON (METHYLPREDNISOLONE) [Concomitant]
  6. MODURETIC 5-50 [Concomitant]

REACTIONS (4)
  - CONFUSIONAL STATE [None]
  - GRAND MAL CONVULSION [None]
  - HYPONATRAEMIA [None]
  - VOMITING [None]
